FAERS Safety Report 10414937 (Version 1)
Quarter: 2014Q3

REPORT INFORMATION
  Report Type: Spontaneous
  Country: IN (occurrence: IN)
  Receive Date: 20140828
  Receipt Date: 20140828
  Transmission Date: 20150326
  Serious: Yes (Other)
  Sender: FDA-Public Use
  Company Number: PHHY2014IN106048

PATIENT
  Age: 86 Year
  Sex: Female

DRUGS (5)
  1. ATENOLOL. [Concomitant]
     Active Substance: ATENOLOL
     Indication: HYPERTENSION
     Dosage: 25 MG, UNK
  2. ACECLOFENAC [Concomitant]
     Active Substance: ACECLOFENAC
     Indication: INFLUENZA LIKE ILLNESS
  3. AMLODIPINE [Concomitant]
     Active Substance: AMLODIPINE BESYLATE
     Indication: HYPERTENSION
     Dosage: 5 MG, QD
  4. ZOLEDRONATE [Suspect]
     Active Substance: ZOLEDRONIC ACID
     Indication: OSTEOPOROSIS
     Dosage: 5 MG, UNK
     Route: 041
  5. ACECLOFENAC [Concomitant]
     Active Substance: ACECLOFENAC
     Indication: PAIN
     Dosage: 100 MG, BID
     Route: 048

REACTIONS (10)
  - Urine output decreased [Unknown]
  - Memory impairment [Recovered/Resolved]
  - Negative thoughts [Recovering/Resolving]
  - Insomnia [Recovering/Resolving]
  - Disorientation [Unknown]
  - Confusional state [Recovered/Resolved]
  - Delirium [Recovering/Resolving]
  - Influenza like illness [Unknown]
  - Agitation [Recovering/Resolving]
  - Incoherent [Unknown]
